FAERS Safety Report 11933132 (Version 3)
Quarter: 2024Q3

REPORT INFORMATION
  Report Type: Spontaneous
  Country: IT (occurrence: IT)
  Receive Date: 20160121
  Receipt Date: 20240822
  Transmission Date: 20241017
  Serious: Yes (Death, Hospitalization)
  Sender: ROCHE
  Company Number: IT-ROCHE-1696760

PATIENT
  Age: 48 Year
  Sex: Female

DRUGS (2)
  1. MYCOPHENOLATE MOFETIL [Suspect]
     Active Substance: MYCOPHENOLATE MOFETIL
     Indication: Undifferentiated connective tissue disease
     Dosage: 1000 MG TWICE DAILY.
     Route: 065
  2. PREDNISONE [Suspect]
     Active Substance: PREDNISONE
     Indication: Undifferentiated connective tissue disease
     Route: 065

REACTIONS (6)
  - Central nervous system infection [Fatal]
  - Hemiparesis [Fatal]
  - Multiple organ dysfunction syndrome [Fatal]
  - Hydrocephalus [Fatal]
  - White matter lesion [Fatal]
  - Cerebral haemorrhage [Fatal]
